FAERS Safety Report 7590579-3 (Version None)
Quarter: 2011Q3

REPORT INFORMATION
  Report Type: 
  Country: None (occurrence: None)
  Receive Date: 20110705
  Receipt Date: 20110627
  Transmission Date: 20111222
  Serious: Yes (Hospitalization)
  Sender: FDA-Public Use
  Company Number: JP-PFIZER INC-2011106171

PATIENT
  Age: 55 Year
  Sex: Male
  Weight: 72.5 kg

DRUGS (22)
  1. POLARAMINE [Concomitant]
     Indication: PROPHYLAXIS
     Dosage: 5 MG, 1X/DAY
     Route: 042
  2. TOUGHMAC E [Concomitant]
     Indication: PROPHYLAXIS
     Dosage: 1 DF, 3X/DAY
     Route: 048
  3. ASTOMIN [Concomitant]
     Indication: UPPER RESPIRATORY TRACT INFECTION
     Dosage: 10 MG, 3X/DAY
     Route: 048
     Dates: start: 20110412, end: 20110419
  4. MEDICON [Concomitant]
     Indication: UPPER RESPIRATORY TRACT INFECTION
     Dosage: 40 MG, 3X/DAY
     Route: 048
     Dates: start: 20110412, end: 20110419
  5. TEMSIROLIMUS [Suspect]
     Dosage: 25 MG, WEEKLY
     Route: 042
     Dates: start: 20110419
  6. PYDOXAL [Concomitant]
     Indication: PROPHYLAXIS
     Dosage: 10 MG, 1X/DAY
     Route: 048
  7. TEMSIROLIMUS [Suspect]
     Indication: RENAL CELL CARCINOMA
     Dosage: 25 MG, WEEKLY
     Route: 042
     Dates: start: 20110329
  8. TEMSIROLIMUS [Suspect]
     Dosage: 25 MG, WEEKLY
     Route: 042
     Dates: start: 20110412
  9. LEVOTHYROXINE SODIUM [Concomitant]
     Dosage: 150 UG, 1X/DAY
     Route: 048
  10. APLACE [Concomitant]
     Indication: PROPHYLAXIS
     Dosage: 100 MG, 2X/DAY
     Route: 048
  11. LANSOPRAZOLE [Concomitant]
     Indication: PROPHYLAXIS
     Dosage: 30 MG, 1X/DAY
     Route: 048
  12. SCOPOLAMINE [Concomitant]
     Indication: PROPHYLAXIS
     Dosage: 20 MG, 3X/DAY
     Route: 048
  13. SP TROCHE [Concomitant]
     Indication: UPPER RESPIRATORY TRACT INFECTION
     Dosage: UNK
     Route: 048
     Dates: start: 20110405, end: 20110426
  14. TEMSIROLIMUS [Suspect]
     Dosage: 25 MG, WEEKLY
     Route: 042
     Dates: start: 20110426
  15. LANTUS [Concomitant]
     Dosage: 9 IU, 1X/DAY
  16. PL GRAN. [Concomitant]
     Indication: UPPER RESPIRATORY TRACT INFECTION
     Dosage: 1 G, 3X/DAY
     Route: 048
     Dates: start: 20110412, end: 20110426
  17. UREPEARL [Concomitant]
     Indication: PROPHYLAXIS
     Dosage: UNK
  18. TEMSIROLIMUS [Suspect]
     Dosage: 25 MG, WEEKLY
     Route: 042
     Dates: start: 20110405
  19. LAC B [Concomitant]
     Indication: PROPHYLAXIS
     Dosage: 1 G, 3X/DAY
     Route: 048
  20. LOXONIN [Concomitant]
     Indication: PAIN IN EXTREMITY
     Dosage: 60 MG, AS NEEDED
     Route: 048
  21. HUMALOG [Concomitant]
     Dosage: 10 IU, 3X/DAY
  22. ZOLPIDEM [Concomitant]
     Dosage: 10 MG, AS NEEDED
     Route: 048

REACTIONS (2)
  - OEDEMA [None]
  - PLEURAL EFFUSION [None]
